FAERS Safety Report 10265315 (Version 1)
Quarter: 2014Q2

REPORT INFORMATION
  Report Type: Spontaneous
  Country: BR (occurrence: BR)
  Receive Date: 20140627
  Receipt Date: 20140627
  Transmission Date: 20141212
  Serious: Yes (Hospitalization)
  Sender: FDA-Public Use
  Company Number: BR-SA-2014SA080558

PATIENT
  Sex: Male
  Weight: 57 kg

DRUGS (1)
  1. LANTUS [Suspect]
     Indication: TYPE 1 DIABETES MELLITUS
     Dosage: DOSE: 30 IU IN MORNING AND 10 IU AT NIGHT
     Route: 058
     Dates: start: 2007

REACTIONS (2)
  - Arrhythmia [Recovering/Resolving]
  - Off label use [Unknown]
